FAERS Safety Report 12203051 (Version 1)
Quarter: 2016Q1

REPORT INFORMATION
  Report Type: Spontaneous
  Country: CZ (occurrence: CZ)
  Receive Date: 20160323
  Receipt Date: 20160323
  Transmission Date: 20160526
  Serious: Yes (Life-Threatening)
  Sender: FDA-Public Use
  Company Number: CZ-ACCORD-038857

PATIENT
  Age: 21 Month
  Sex: Female

DRUGS (6)
  1. VINCRISTINE [Suspect]
     Active Substance: VINCRISTINE
     Indication: MEDULLOBLASTOMA
     Dosage: 3 INDUCTION BLOCKS OF COMBINATION CHEMOTHERAPY
  2. CYCLOPHOSPHAMIDE/CYCLOPHOSPHAMIDE MONOHYDRATE [Suspect]
     Active Substance: CYCLOPHOSPHAMIDE
     Indication: MEDULLOBLASTOMA
  3. ETOPOSIDE. [Suspect]
     Active Substance: ETOPOSIDE
     Indication: MEDULLOBLASTOMA
     Dosage: 3 BLOCKS OF CONSOLIDATED CHEMOTHERAPY
  4. CISPLATIN. [Suspect]
     Active Substance: CISPLATIN
     Indication: MEDULLOBLASTOMA
     Dosage: 3 INDUCTION BLOCKS OF COMBINATION CHEMOTHERAPY
  5. ETOPOSIDE. [Suspect]
     Active Substance: ETOPOSIDE
     Indication: MEDULLOBLASTOMA
     Dosage: 3 INDUCTION BLOCKS OF COMBINATION CHEMOTHERAPY
  6. THIOTEPA. [Suspect]
     Active Substance: THIOTEPA
     Indication: MEDULLOBLASTOMA
     Dosage: 3 BLOCKS OF CONSOLIDATED CHEMOTHERAPY

REACTIONS (4)
  - Toxicity to various agents [Unknown]
  - Haematotoxicity [None]
  - Off label use [Unknown]
  - Sepsis [Unknown]
